FAERS Safety Report 4569957-2 (Version None)
Quarter: 2005Q1

REPORT INFORMATION
  Report Type: 
  Country: None (occurrence: None)
  Receive Date: 20050131
  Receipt Date: 20050125
  Transmission Date: 20050727
  Serious: Yes (Other)
  Sender: FDA-Public Use
  Company Number: 430099K04USA

PATIENT
  Age: 45 Year
  Sex: Female

DRUGS (9)
  1. NOVANTRONE [Suspect]
     Indication: MULTIPLE SCLEROSIS
     Dosage: 12 MG/KG, 1 IN 3 MONTHS, INTRAVENOUS (NOT OTHERWISE SPECIFIED)
     Dates: end: 20041124
  2. REBIF [Concomitant]
  3. NEURONTIN [Concomitant]
  4. ELAVIL [Concomitant]
  5. PROZAC [Concomitant]
  6. SYNTHROID [Concomitant]
  7. LIPITOR [Concomitant]
  8. RESTORIL [Concomitant]
  9. TERAZOSIN (TERAZOSIN) [Concomitant]

REACTIONS (2)
  - CARDIOTOXICITY [None]
  - EJECTION FRACTION DECREASED [None]
